FAERS Safety Report 18772326 (Version 5)
Quarter: 2022Q2

REPORT INFORMATION
  Report Type: Spontaneous
  Country: GB (occurrence: GB)
  Receive Date: 20210122
  Receipt Date: 20220429
  Transmission Date: 20220721
  Serious: Yes (Death, Hospitalization, Disabling, Other)
  Sender: FDA-Public Use
  Company Number: GB-MHRA-ADR 24308526

PATIENT
  Age: 47 Year
  Sex: Female

DRUGS (40)
  1. IRINOTECAN [Suspect]
     Active Substance: IRINOTECAN
     Indication: Breast cancer metastatic
     Dosage: 108MG EVERY 3 WEEKS
     Route: 042
     Dates: start: 20151120, end: 20160222
  2. IRINOTECAN [Suspect]
     Active Substance: IRINOTECAN
     Indication: HER2 positive breast cancer
     Dosage: 132 MG (LOADING DOSE)
     Route: 042
     Dates: start: 20151022, end: 20151022
  3. LETROZOLE [Suspect]
     Active Substance: LETROZOLE
     Indication: HER2 positive breast cancer
     Dosage: 2.5 MILLIGRAM, DAILY
     Route: 048
     Dates: start: 20160308, end: 20161123
  4. DOCETAXEL [Suspect]
     Active Substance: DOCETAXEL
     Indication: HER2 positive breast cancer
     Dosage: 132 MG (LOADING DOSE)
     Route: 042
     Dates: start: 20151022, end: 20151022
  5. DOCETAXEL [Suspect]
     Active Substance: DOCETAXEL
     Indication: Breast cancer metastatic
     Dosage: 108 MG, EVERY 3 WEEKS MAINTENANCE DOSE
     Route: 042
     Dates: start: 20151120, end: 20160222
  6. PERTUZUMAB [Suspect]
     Active Substance: PERTUZUMAB
     Indication: Breast cancer metastatic
     Dosage: 420 MG, EVERY 3 WEEKS MAINTENANCE DOSE
     Route: 042
     Dates: start: 20151120, end: 20161104
  7. PERTUZUMAB [Suspect]
     Active Substance: PERTUZUMAB
     Indication: HER2 positive breast cancer
     Dosage: MAINTENANCE DOSE
     Route: 042
     Dates: start: 20151120, end: 20161104
  8. PERTUZUMAB [Suspect]
     Active Substance: PERTUZUMAB
     Dosage: 840 MG (LOADING DOSE)
     Route: 042
     Dates: start: 20151023, end: 20151023
  9. TRASTUZUMAB [Suspect]
     Active Substance: TRASTUZUMAB
     Indication: HER2 positive breast cancer
     Dosage: 525 MG, UNK (LOADING DOSE)
     Route: 042
     Dates: start: 20151023, end: 20151023
  10. TRASTUZUMAB [Suspect]
     Active Substance: TRASTUZUMAB
     Indication: HER2 positive breast cancer
     Dosage: 400 MG, QW3 (MAINTENANCE DOSE)
     Route: 042
     Dates: start: 20151120, end: 20161104
  11. TRASTUZUMAB [Suspect]
     Active Substance: TRASTUZUMAB
     Dosage: 200 MG, EVERY 3 WEEKS
     Route: 042
     Dates: start: 20170330, end: 20170608
  12. TRASTUZUMAB [Suspect]
     Active Substance: TRASTUZUMAB
     Dosage: 240 MG, EVERY 3 WEEKS
     Route: 042
     Dates: start: 20161201, end: 20170302
  13. CHLORPHENIRAMINE MALEATE [Suspect]
     Active Substance: CHLORPHENIRAMINE MALEATE
     Indication: Prophylaxis
     Dosage: 30 MG, QW
     Route: 042
     Dates: start: 20151022, end: 20160222
  14. CHLORPHENIRAMINE MALEATE [Suspect]
     Active Substance: CHLORPHENIRAMINE MALEATE
     Dosage: 10 MG, 3X/WEEK
     Route: 042
     Dates: start: 20151022, end: 20160222
  15. DEXAMETHASONE [Concomitant]
     Active Substance: DEXAMETHASONE
     Indication: Metastases to central nervous system
     Dosage: 4 MG, 2X/DAY
     Route: 048
     Dates: start: 20170809, end: 20170919
  16. DEXAMETHASONE [Concomitant]
     Active Substance: DEXAMETHASONE
     Indication: Disease progression
     Dosage: 8 MG (0.5 DAY)
     Route: 048
     Dates: start: 20170803, end: 20170809
  17. DEXAMETHASONE [Concomitant]
     Active Substance: DEXAMETHASONE
     Indication: Prophylaxis
     Dosage: 2 MG, QD
     Route: 048
     Dates: start: 20170726, end: 20170803
  18. DEXAMETHASONE [Concomitant]
     Active Substance: DEXAMETHASONE
     Indication: Neoplasm progression
     Dosage: 16 MILLIGRAM, UNK
     Route: 048
     Dates: start: 20170803, end: 20170809
  19. DEXAMETHASONE [Concomitant]
     Active Substance: DEXAMETHASONE
     Dosage: 8 MG (TWICE A DAY FOR 3 DAYS STARTING DAY BEFORE CHEMO) (0.5 DAY)
     Route: 048
     Dates: start: 20151210, end: 20160222
  20. DEXAMETHASONE [Concomitant]
     Active Substance: DEXAMETHASONE
     Dosage: 8 MILLIGRAM, UNK
     Route: 048
     Dates: start: 20170809, end: 20170919
  21. FILGRASTIM [Concomitant]
     Active Substance: FILGRASTIM
     Indication: Prophylaxis
     Dosage: 300 UG, 1X/DAY
     Route: 058
     Dates: start: 20151120, end: 20151127
  22. FILGRASTIM [Concomitant]
     Active Substance: FILGRASTIM
     Indication: Palliative care
     Dosage: 300 UG, UNK
     Route: 058
     Dates: start: 20151210, end: 20160305
  23. FILGRASTIM [Concomitant]
     Active Substance: FILGRASTIM
     Dosage: 30 MICROGRAM, UNK
     Route: 058
  24. FILGRASTIM [Concomitant]
     Active Substance: FILGRASTIM
     Dosage: 30 UG, QD
     Route: 058
     Dates: start: 20151120, end: 20151127
  25. GLYCOPYRRONIUM [Concomitant]
     Active Substance: GLYCOPYRRONIUM
     Indication: Palliative care
     Dosage: 400 UG, PRN
     Route: 058
     Dates: start: 20170919, end: 20170920
  26. HALOPERIDOL [Concomitant]
     Active Substance: HALOPERIDOL
     Indication: Palliative care
     Dosage: 1.5 MG, PRN
     Route: 058
     Dates: start: 20170919, end: 20170920
  27. HALOPERIDOL [Concomitant]
     Active Substance: HALOPERIDOL
     Dosage: 1.5 MG, BID
     Route: 058
     Dates: start: 20170810, end: 20170919
  28. HYDROCORTISONE [Concomitant]
     Active Substance: HYDROCORTISONE
     Indication: Prophylaxis
     Dosage: 100 MG (0.33 WEEK)
     Route: 042
     Dates: start: 20151022, end: 20160222
  29. HYDROCORTISONE [Concomitant]
     Active Substance: HYDROCORTISONE
     Dosage: 300 MG, QW
     Route: 042
     Dates: start: 20151022, end: 20160222
  30. LANSOPRAZOLE [Concomitant]
     Active Substance: LANSOPRAZOLE
     Indication: Prophylaxis
     Dosage: 30 MILLIGRAM, DAILY
     Route: 048
     Dates: start: 20170728, end: 20170905
  31. MIDAZOLAM [Concomitant]
     Active Substance: MIDAZOLAM
     Indication: Palliative care
     Dosage: 2.5 MG, PRN
     Route: 058
  32. MIDAZOLAM [Concomitant]
     Active Substance: MIDAZOLAM
     Dosage: 2.5 MG, PRN
     Route: 058
     Dates: start: 20170918, end: 20170920
  33. MORPHINE SULFATE [Concomitant]
     Active Substance: MORPHINE SULFATE
     Indication: Palliative care
     Dosage: 2.5 MG, PRN
     Route: 058
     Dates: start: 20170918, end: 20170920
  34. ZOLEDRONIC ACID [Concomitant]
     Active Substance: ZOLEDRONIC ACID
     Indication: Product used for unknown indication
     Dosage: 4 MG, QMO
     Route: 042
     Dates: start: 20151022, end: 20170713
  35. TRASTUZUMAB [Suspect]
     Active Substance: TRASTUZUMAB
     Indication: Product used for unknown indication
  36. CHLORPHENIRAMINE MALEATE [Suspect]
     Active Substance: CHLORPHENIRAMINE MALEATE
     Indication: Product used for unknown indication
  37. TRASTUZUMAB [Suspect]
     Active Substance: TRASTUZUMAB
     Indication: Product used for unknown indication
  38. CHLORPHENIRAMINE MALEATE [Suspect]
     Active Substance: CHLORPHENIRAMINE MALEATE
     Indication: Product used for unknown indication
  39. CHLORPHENIRAMINE [Concomitant]
     Active Substance: CHLORPHENIRAMINE
     Indication: Product used for unknown indication
  40. ADO-TRASTUZUMAB EMTANSINE [Suspect]
     Active Substance: ADO-TRASTUZUMAB EMTANSINE
     Indication: Product used for unknown indication

REACTIONS (18)
  - Abnormal sensation in eye [Recovered/Resolved]
  - Dyschezia [Not Recovered/Not Resolved]
  - Decreased appetite [Recovered/Resolved]
  - Nasopharyngitis [Recovered/Resolved]
  - Depression [Not Recovered/Not Resolved]
  - Asthenia [Recovered/Resolved]
  - Hypocalcaemia [Not Recovered/Not Resolved]
  - Lethargy [Not Recovered/Not Resolved]
  - Migraine [Not Recovered/Not Resolved]
  - Oropharyngeal pain [Recovered/Resolved]
  - Rectal haemorrhage [Fatal]
  - Insomnia [Fatal]
  - Neuropathy peripheral [Fatal]
  - Nausea [Fatal]
  - Conjunctivitis [Fatal]
  - Vulvovaginal candidiasis [Fatal]
  - Urinary tract infection [Fatal]
  - Oral candidiasis [Fatal]

NARRATIVE: CASE EVENT DATE: 20160112
